FAERS Safety Report 4663615-1 (Version None)
Quarter: 2005Q2

REPORT INFORMATION
  Report Type: 
  Country: None (occurrence: None)
  Receive Date: 20050517
  Receipt Date: 20050510
  Transmission Date: 20051028
  Serious: Yes (Other)
  Sender: FDA-Public Use
  Company Number: AU-GLAXOSMITHKLINE-B0380717A

PATIENT
  Age: 42 Year
  Sex: Female

DRUGS (1)
  1. PANADOL RAPID [Suspect]
     Indication: PYREXIA
     Route: 048

REACTIONS (2)
  - DRUG ADMINISTRATION ERROR [None]
  - LIVER FUNCTION TEST ABNORMAL [None]
